FAERS Safety Report 21600233 (Version 1)
Quarter: 2022Q4

REPORT INFORMATION
  Report Type: Other
  Country: None (occurrence: SG)
  Receive Date: 20221116
  Receipt Date: 20221116
  Transmission Date: 20230113
  Serious: Yes (Life-Threatening, Other)
  Sender: FDA-Public Use
  Company Number: SG-B.Braun Medical Inc.-2134912

PATIENT
  Age: 22 Year
  Sex: Female

DRUGS (1)
  1. DEXTROSE [Suspect]
     Active Substance: DEXTROSE
     Indication: Hyperkalaemia

REACTIONS (2)
  - Off label use [Unknown]
  - Drug ineffective [Unknown]
